FAERS Safety Report 5186343-5 (Version None)
Quarter: 2006Q4

REPORT INFORMATION
  Report Type: 
  Country: None (occurrence: None)
  Receive Date: 20061213
  Receipt Date: 20061201
  Transmission Date: 20070319
  Serious: Yes (Hospitalization, Other)
  Sender: FDA-Public Use
  Company Number: 2006129597

PATIENT
  Age: 73 Year
  Sex: Male
  Weight: 68 kg

DRUGS (3)
  1. LYRICA [Suspect]
  2. DIAMICRON (GLICLAZIDE) [Concomitant]
  3. BIPRETERAX (INDAPAMIDE, PERINDOPRIL ERBUMINE) [Concomitant]

REACTIONS (1)
  - ANURIA [None]
